FAERS Safety Report 14896562 (Version 1)
Quarter: 2018Q2

REPORT INFORMATION
  Report Type: Spontaneous
  Country: FR (occurrence: FR)
  Receive Date: 20180515
  Receipt Date: 20180515
  Transmission Date: 20180711
  Serious: Yes (Hospitalization, Other)
  Sender: FDA-Public Use
  Company Number: FR-PFIZER INC-2018197139

PATIENT
  Age: 69 Year
  Sex: Male

DRUGS (5)
  1. VISIPAQUE [Suspect]
     Active Substance: IODIXANOL
     Indication: ARTERIOGRAM CORONARY
     Dosage: 1 DF, UNK
     Route: 041
     Dates: start: 20171212
  2. INSPRA [Suspect]
     Active Substance: EPLERENONE
     Indication: ACUTE CORONARY SYNDROME
     Dosage: 25 MG, DAILY
     Route: 048
     Dates: start: 20171212, end: 20171222
  3. TRIATEC (RAMIPRIL) [Suspect]
     Active Substance: RAMIPRIL
     Indication: ACUTE CORONARY SYNDROME
     Dosage: 1.25 MG, DAILY
     Route: 048
     Dates: start: 20171212, end: 20171222
  4. BRILIQUE [Suspect]
     Active Substance: TICAGRELOR
     Indication: ACUTE CORONARY SYNDROME
     Dosage: 180 MG, DAILY
     Route: 048
     Dates: start: 20171215, end: 20171222
  5. IOMERON [Suspect]
     Active Substance: IOMEPROL
     Indication: ARTERIOGRAM CORONARY
     Dosage: 1 DF, UNK (TOTAL) (400 MG D^IODE/ML)
     Route: 041
     Dates: start: 20171213, end: 20171213

REACTIONS (1)
  - Drug reaction with eosinophilia and systemic symptoms [Recovering/Resolving]

NARRATIVE: CASE EVENT DATE: 20171218
